FAERS Safety Report 5107265-1 (Version None)
Quarter: 2006Q3

REPORT INFORMATION
  Report Type: 
  Country: None (occurrence: None)
  Receive Date: 20060914
  Receipt Date: 20060907
  Transmission Date: 20061208
  Serious: Yes (Other)
  Sender: FDA-Public Use
  Company Number: S06-USA-03607-01

PATIENT
  Age: 64 Year
  Sex: Female

DRUGS (3)
  1. LEXAPRO [Suspect]
     Dosage: 10 MG QD PO
     Route: 048
     Dates: start: 20051201
  2. LEXAPRO [Suspect]
     Dosage: 5 MG QD PO
     Route: 048
     Dates: start: 20050801, end: 20051201
  3. ESTROGENS SOL/INJ [Concomitant]

REACTIONS (4)
  - DERMATOMYOSITIS [None]
  - MUSCULAR WEAKNESS [None]
  - OVARIAN CANCER [None]
  - RECURRENT CANCER [None]
